FAERS Safety Report 10080581 (Version 3)
Quarter: 2014Q3

REPORT INFORMATION
  Report Type: Spontaneous
  Country: US (occurrence: US)
  Receive Date: 20140416
  Receipt Date: 20140918
  Transmission Date: 20150326
  Serious: Yes (Hospitalization, Other)
  Sender: FDA-Public Use
  Company Number: US-ASTRAZENECA-2014SE24995

PATIENT
  Age: 27194 Day
  Sex: Male
  Weight: 64.9 kg

DRUGS (10)
  1. PRAVASTATIN [Concomitant]
     Active Substance: PRAVASTATIN\PRAVASTATIN SODIUM
     Indication: BLOOD CHOLESTEROL ABNORMAL
  2. HYDROMORPHONE [Concomitant]
     Active Substance: HYDROMORPHONE
     Indication: PAIN
     Route: 048
  3. IPRATROPIUM [Concomitant]
     Active Substance: IPRATROPIUM
  4. MEGACE [Concomitant]
     Active Substance: MEGESTROL ACETATE
  5. SYMBICORT [Suspect]
     Active Substance: BUDESONIDE\FORMOTEROL FUMARATE DIHYDRATE
     Indication: LUNG NEOPLASM MALIGNANT
     Dosage: 160/4.5 MCG, 2 PUFFS, TWO TIMES A DAY
     Route: 055
  6. SYMBICORT [Suspect]
     Active Substance: BUDESONIDE\FORMOTEROL FUMARATE DIHYDRATE
     Indication: APNOEA
     Dosage: 160/4.5 MCG, 2 PUFFS, TWO TIMES A DAY
     Route: 055
  7. FENTENYL [Concomitant]
     Indication: PAIN
     Route: 061
  8. ASPIRIN. [Concomitant]
     Active Substance: ASPIRIN
     Indication: COAGULOPATHY
     Route: 048
  9. ALBUTEROL. [Concomitant]
     Active Substance: ALBUTEROL
     Indication: LUNG NEOPLASM MALIGNANT
     Route: 055
  10. MAGNESIUM [Concomitant]
     Active Substance: MAGNESIUM
     Dates: start: 201404

REACTIONS (9)
  - Blood magnesium decreased [Unknown]
  - Off label use [Unknown]
  - Lung disorder [Unknown]
  - Heart rate increased [Unknown]
  - Hyperpyrexia [Unknown]
  - Decreased appetite [Unknown]
  - Lung cancer metastatic [Recovering/Resolving]
  - Weight decreased [Recovering/Resolving]
  - Weight increased [Unknown]

NARRATIVE: CASE EVENT DATE: 20131226
